FAERS Safety Report 25858283 (Version 2)
Quarter: 2025Q4

REPORT INFORMATION
  Report Type: Spontaneous
  Country: US (occurrence: US)
  Receive Date: 20250929
  Receipt Date: 20251028
  Transmission Date: 20260118
  Serious: No
  Sender: GALDERMA
  Company Number: US-GALDERMA-US2025017041

PATIENT

DRUGS (2)
  1. NEMLUVIO [Suspect]
     Active Substance: NEMOLIZUMAB-ILTO
     Indication: Neurodermatitis
     Dosage: UNK
     Route: 058
     Dates: start: 20250108, end: 20250108
  2. NEMLUVIO [Suspect]
     Active Substance: NEMOLIZUMAB-ILTO
     Dosage: UNK
     Route: 058
     Dates: start: 20250612, end: 20250612

REACTIONS (1)
  - Product dose omission issue [Recovered/Resolved]

NARRATIVE: CASE EVENT DATE: 20250701
